FAERS Safety Report 4854521-8 (Version None)
Quarter: 2005Q4

REPORT INFORMATION
  Report Type: 
  Country: None (occurrence: None)
  Receive Date: 20051213
  Receipt Date: 20051201
  Transmission Date: 20060501
  Serious: Yes (Other)
  Sender: FDA-Public Use
  Company Number: 2005163683

PATIENT
  Sex: Male

DRUGS (3)
  1. TOLTERODINE TARTRATE [Suspect]
     Indication: MICTURITION URGENCY
     Dosage: 4 MG (4 MG 1 IN 1D) ORAL
     Route: 048
     Dates: start: 20051121
  2. SINEMET [Concomitant]
  3. DIGOXIN [Concomitant]

REACTIONS (3)
  - CATHETERISATION CARDIAC [None]
  - LOSS OF CONSCIOUSNESS [None]
  - SYNCOPE [None]
